FAERS Safety Report 6368579-0 (Version None)
Quarter: 2009Q3

REPORT INFORMATION
  Report Type: 
  Country: None (occurrence: None)
  Receive Date: 20090922
  Receipt Date: 20090506
  Transmission Date: 20100115
  Serious: No
  Sender: FDA-Public Use
  Company Number: US-BRISTOL-MYERS SQUIBB COMPANY-14586226

PATIENT
  Age: 50 Year
  Sex: Male
  Weight: 86 kg

DRUGS (4)
  1. ABILIFY [Suspect]
     Indication: DEPRESSION
     Dosage: ALSO INDICATED FOR CHEMICAL IMBALANCE
     Dates: start: 20090309
  2. BUSPAR [Suspect]
  3. EFFEXOR [Suspect]
  4. LISINOPRIL [Concomitant]

REACTIONS (3)
  - ERECTILE DYSFUNCTION [None]
  - MALAISE [None]
  - SOMNOLENCE [None]
